FAERS Safety Report 9287128 (Version 1)
Quarter: 2013Q2

REPORT INFORMATION
  Report Type: Other
  Country: DE (occurrence: DE)
  Receive Date: 20130513
  Receipt Date: 20130513
  Transmission Date: 20140414
  Serious: Yes (Hospitalization)
  Sender: FDA-Public Use
  Company Number: DE-NICOBRDEVP-2013-07530

PATIENT
  Age: 51 Year
  Sex: Female

DRUGS (5)
  1. SERTRALINE HYDROCHLORIDE (UNKNOWN) [Suspect]
     Indication: DEPRESSION
     Dosage: 100 MG, DAILY
     Route: 048
     Dates: start: 20120713, end: 20120716
  2. SERTRALINE HYDROCHLORIDE (UNKNOWN) [Suspect]
     Dosage: 50 MG, DAILY
     Route: 048
     Dates: start: 20120701, end: 20120712
  3. MIRTAZAPINE (UNKNOWN) [Suspect]
     Indication: PRODUCT USED FOR UNKNOWN INDICATION
     Dosage: 7.5-15MG DAILY
     Route: 048
     Dates: start: 20120621, end: 20120730
  4. ZOPICLONE [Concomitant]
     Indication: SLEEP DISORDER
     Dosage: UNK, UNKNOWN
     Route: 065
  5. LYRICA [Concomitant]
     Indication: ANXIETY DISORDER
     Dosage: UNK, UNKNOWN
     Route: 065

REACTIONS (4)
  - Restlessness [Recovering/Resolving]
  - Hepatic enzyme increased [Recovering/Resolving]
  - Sleep disorder [Recovering/Resolving]
  - Anxiety disorder [Recovering/Resolving]
